FAERS Safety Report 12669247 (Version 1)
Quarter: 2016Q3

REPORT INFORMATION
  Report Type: Spontaneous
  Country: FR (occurrence: FR)
  Receive Date: 20160820
  Receipt Date: 20160820
  Transmission Date: 20161109
  Serious: Yes (Life-Threatening, Hospitalization, Other)
  Sender: FDA-Public Use
  Company Number: FR-ASTRAZENECA-2016SE88898

PATIENT
  Age: 2308 Week
  Sex: Female

DRUGS (9)
  1. IMOVANE [Suspect]
     Active Substance: ZOPICLONE
     Dosage: 28.0DF ONCE/SINGLE ADMINISTRATION
     Route: 048
     Dates: start: 20160722, end: 20160722
  2. LEVOCETIRIZINE [Suspect]
     Active Substance: LEVOCETIRIZINE
     Route: 048
  3. VENLAFAXINE [Suspect]
     Active Substance: VENLAFAXINE HYDROCHLORIDE
     Dosage: 60.0DF ONCE/SINGLE ADMINISTRATION
     Route: 048
     Dates: start: 20160722, end: 20160722
  4. LAMICTAL [Suspect]
     Active Substance: LAMOTRIGINE
     Dosage: 84.0DF ONCE/SINGLE ADMINISTRATION
     Route: 048
     Dates: start: 20160722, end: 20160722
  5. XEROQUEL [Suspect]
     Active Substance: QUETIAPINE FUMARATE
     Dosage: 11.0DF ONCE/SINGLE ADMINISTRATION
     Route: 048
     Dates: start: 20160722, end: 20160722
  6. ATARAX [Suspect]
     Active Substance: HYDROXYZINE\HYDROXYZINE HYDROCHLORIDE
     Dosage: 30.0DF ONCE/SINGLE ADMINISTRATION
     Route: 048
     Dates: start: 20160722, end: 20160722
  7. LAROXYL [Suspect]
     Active Substance: AMITRIPTYLINE
     Dosage: 60.0DF ONCE/SINGLE ADMINISTRATION
     Route: 048
     Dates: start: 20160722, end: 20160722
  8. DOSULEPIN HYDROCHLORIDE [Suspect]
     Active Substance: DOTHIEPIN HYDROCHLORIDE
     Route: 048
  9. PREDNISOLONE. [Suspect]
     Active Substance: PREDNISOLONE
     Dosage: 14.0DF ONCE/SINGLE ADMINISTRATION
     Route: 048
     Dates: start: 20160722, end: 20160722

REACTIONS (15)
  - Pneumonia aspiration [Unknown]
  - Coma [Recovered/Resolved]
  - Intentional overdose [Unknown]
  - Bundle branch block [Unknown]
  - Tremor [Unknown]
  - Electrocardiogram QT prolonged [Unknown]
  - Electrocardiogram QRS complex prolonged [Unknown]
  - Mydriasis [Unknown]
  - Hypothermia [Recovered/Resolved]
  - Lactic acidosis [Unknown]
  - Hypotonia [Recovered/Resolved]
  - Bradypnoea [Unknown]
  - Hypotension [Recovered/Resolved]
  - Staphylococcal infection [Unknown]
  - Hypokalaemia [Unknown]

NARRATIVE: CASE EVENT DATE: 20160722
